FAERS Safety Report 5075341-8 (Version None)
Quarter: 2006Q3

REPORT INFORMATION
  Report Type: 
  Country: None (occurrence: None)
  Receive Date: 20060809
  Receipt Date: 20051208
  Transmission Date: 20061208
  Serious: No
  Sender: FDA-Public Use
  Company Number: US-AMGEN-US160755

PATIENT
  Sex: Male
  Weight: 69.5 kg

DRUGS (10)
  1. EPOGEN [Suspect]
     Indication: RENAL FAILURE CHRONIC
     Route: 058
     Dates: start: 20051021, end: 20051123
  2. GLUCOPHAGE [Concomitant]
     Route: 065
  3. LASIX [Concomitant]
     Route: 065
  4. ACTOS [Concomitant]
     Route: 065
  5. ZETIA [Concomitant]
     Route: 065
  6. COREG [Concomitant]
     Route: 065
  7. COUMADIN [Concomitant]
     Route: 065
  8. PROTONIX [Concomitant]
     Route: 065
  9. ZOCOR [Concomitant]
     Route: 065
  10. RHINOCORT [Concomitant]
     Route: 065

REACTIONS (2)
  - HEPATIC ENZYME INCREASED [None]
  - MYOPATHY [None]
